FAERS Safety Report 11616440 (Version 1)
Quarter: 2015Q4

REPORT INFORMATION
  Report Type: Spontaneous
  Country: US (occurrence: US)
  Receive Date: 20151009
  Receipt Date: 20151009
  Transmission Date: 20160304
  Serious: Yes (Death)
  Sender: FDA-Public Use
  Company Number: US-INCYTE CORPORATION-2015IN004311

PATIENT
  Sex: Male
  Weight: 76.64 kg

DRUGS (7)
  1. SYNTHROID [Concomitant]
     Active Substance: LEVOTHYROXINE SODIUM
  2. ADVIL [Concomitant]
     Active Substance: IBUPROFEN
  3. HYDROXYUREA. [Concomitant]
     Active Substance: HYDROXYUREA
  4. CALCIUM [Concomitant]
     Active Substance: CALCIUM
  5. JAKAFI [Suspect]
     Active Substance: RUXOLITINIB
     Indication: MYELOFIBROSIS
     Dosage: 25 MG, BID
     Route: 048
     Dates: start: 2010
  6. PRILOSEC [Concomitant]
     Active Substance: OMEPRAZOLE MAGNESIUM
  7. FLOMAX [Concomitant]
     Active Substance: TAMSULOSIN HYDROCHLORIDE

REACTIONS (2)
  - White blood cell count increased [Unknown]
  - Myelofibrosis [Fatal]

NARRATIVE: CASE EVENT DATE: 2015
